FAERS Safety Report 11434519 (Version 1)
Quarter: 2015Q3

REPORT INFORMATION
  Report Type: Spontaneous
  Country: US (occurrence: None)
  Receive Date: 20150828
  Receipt Date: 20150828
  Transmission Date: 20151125
  Serious: No
  Sender: FDA-Public Use
  Company Number: None

PATIENT
  Age: 29 Year
  Sex: Female
  Weight: 56.7 kg

DRUGS (1)
  1. DEXTROAMPHETAMIN AMPHETAMINE ER 20MG ACTAVIS [Suspect]
     Active Substance: AMPHETAMINE ASPARTATE\AMPHETAMINE SULFATE\DEXTROAMPHETAMINE SACCHARATE\DEXTROAMPHETAMINE SULFATE
     Indication: ATTENTION DEFICIT/HYPERACTIVITY DISORDER
     Dosage: 1 PILL
     Route: 048

REACTIONS (11)
  - Food craving [None]
  - Lethargy [None]
  - Drug ineffective [None]
  - Back pain [None]
  - Fatigue [None]
  - Headache [None]
  - Irritability [None]
  - Attention deficit/hyperactivity disorder [None]
  - Disease recurrence [None]
  - Depressed mood [None]
  - Palpitations [None]

NARRATIVE: CASE EVENT DATE: 20150824
